FAERS Safety Report 9585871 (Version 1)
Quarter: 2013Q4

REPORT INFORMATION
  Report Type: Spontaneous
  Country: BR (occurrence: BR)
  Receive Date: 20131003
  Receipt Date: 20131003
  Transmission Date: 20140711
  Serious: Yes (Hospitalization, Other)
  Sender: FDA-Public Use
  Company Number: BR-JNJFOC-20130912264

PATIENT
  Age: 91 Year
  Sex: Female
  Weight: 62 kg

DRUGS (10)
  1. TYLEX [Suspect]
     Indication: ARTHRALGIA
     Route: 065
     Dates: start: 20130915, end: 20130917
  2. TYLEX [Suspect]
     Indication: MUSCULOSKELETAL PAIN
     Route: 065
     Dates: start: 20130915, end: 20130917
  3. LEVOTHYROXINE [Concomitant]
     Indication: THYROID DISORDER
     Route: 065
  4. FUROSEMIDE [Concomitant]
     Indication: PRODUCT USED FOR UNKNOWN INDICATION
     Route: 065
  5. ISKEMIL [Concomitant]
     Indication: DEMENTIA ALZHEIMER^S TYPE
     Route: 065
  6. ALOIS [Concomitant]
     Indication: DEMENTIA ALZHEIMER^S TYPE
     Route: 065
  7. ERANZ [Concomitant]
     Indication: DEMENTIA ALZHEIMER^S TYPE
     Route: 065
  8. RITMONORM (PROPAFENONE 300MG) [Concomitant]
     Indication: ARRHYTHMIA
     Route: 065
  9. DAFLON [Concomitant]
     Indication: PERIPHERAL VASCULAR DISORDER
     Route: 065
  10. SERTRALINE [Concomitant]
     Indication: DEPRESSION
     Route: 065

REACTIONS (7)
  - Confusional state [Recovering/Resolving]
  - Dyspnoea [Recovering/Resolving]
  - Gait disturbance [Recovering/Resolving]
  - Somnolence [Recovering/Resolving]
  - Ocular hyperaemia [Not Recovered/Not Resolved]
  - Blood pressure fluctuation [Unknown]
  - Conjunctivitis [Not Recovered/Not Resolved]
